FAERS Safety Report 12561231 (Version 2)
Quarter: 2016Q3

REPORT INFORMATION
  Report Type: Report from Study
  Country: MX (occurrence: MX)
  Receive Date: 20160715
  Receipt Date: 20160811
  Transmission Date: 20161109
  Serious: Yes (Death, Hospitalization, Other)
  Sender: FDA-Public Use
  Company Number: MX-AMGEN-MEXSL2016090082

PATIENT
  Age: 40 Year
  Sex: Male

DRUGS (1)
  1. BLINCYTO [Suspect]
     Active Substance: BLINATUMOMAB
     Indication: ACUTE LYMPHOCYTIC LEUKAEMIA
     Dosage: 10 ML, Q4WK
     Route: 042
     Dates: start: 20160604

REACTIONS (7)
  - Asthenia [Unknown]
  - Neurotoxicity [Recovering/Resolving]
  - Dyspnoea [Unknown]
  - Haematochezia [Unknown]
  - Encephalitis viral [Fatal]
  - Dehydration [Unknown]
  - Pyrexia [Unknown]

NARRATIVE: CASE EVENT DATE: 20160704
